FAERS Safety Report 7423959-7 (Version None)
Quarter: 2011Q2

REPORT INFORMATION
  Report Type: 
  Country: None (occurrence: None)
  Receive Date: 20110419
  Receipt Date: 20110411
  Transmission Date: 20111010
  Serious: Yes (Hospitalization, Other)
  Sender: FDA-Public Use
  Company Number: B0686442A

PATIENT
  Sex: Male

DRUGS (5)
  1. RETROVIR [Suspect]
     Dosage: 2MGK FOUR TIMES PER DAY
     Route: 048
     Dates: start: 20101127, end: 20110106
  2. KALETRA [Suspect]
     Indication: HIV INFECTION
     Route: 064
  3. RETROVIR [Suspect]
     Indication: ANTIVIRAL PROPHYLAXIS
     Dosage: 20MGK SINGLE DOSE
     Route: 048
     Dates: start: 20101126, end: 20101126
  4. RETROVIR [Suspect]
     Route: 064
     Dates: start: 20101125, end: 20101125
  5. COMBIVIR [Suspect]
     Indication: HIV INFECTION
     Route: 064

REACTIONS (5)
  - ANAEMIA [None]
  - ACCIDENTAL OVERDOSE [None]
  - DRUG EXPOSURE DURING PREGNANCY [None]
  - NEUTROPENIA [None]
  - LEUKOPENIA [None]
